FAERS Safety Report 4648044-9 (Version None)
Quarter: 2005Q2

REPORT INFORMATION
  Report Type: 
  Country: None (occurrence: None)
  Receive Date: 20050426
  Receipt Date: 20050414
  Transmission Date: 20051028
  Serious: Yes (Other)
  Sender: FDA-Public Use
  Company Number: S05-USA-01983-01

PATIENT
  Age: 14 Year
  Sex: Female

DRUGS (3)
  1. LEXAPRO [Suspect]
     Indication: DEPRESSION
     Dosage: 10 MG QD PO
     Route: 048
     Dates: start: 20050317
  2. LEXAPRO [Suspect]
     Indication: GENERALISED ANXIETY DISORDER
     Dosage: 10 MG QD PO
     Route: 048
     Dates: start: 20050317
  3. SEROQUEL [Concomitant]

REACTIONS (4)
  - ANGER [None]
  - FATIGUE [None]
  - INTENTIONAL SELF-INJURY [None]
  - SKIN LACERATION [None]
